FAERS Safety Report 5847526-1 (Version None)
Quarter: 2008Q3

REPORT INFORMATION
  Report Type: 
  Country: None (occurrence: None)
  Receive Date: 20080814
  Receipt Date: 20080808
  Transmission Date: 20090109
  Serious: Yes (Hospitalization)
  Sender: FDA-Public Use
  Company Number: 2008SP016218

PATIENT
  Age: 47 Year
  Sex: Female

DRUGS (1)
  1. ALBUTEROL [Suspect]
     Indication: ASTHMA
     Dosage: PO
     Route: 048

REACTIONS (4)
  - ACUTE MYOCARDIAL INFARCTION [None]
  - ASTHMA [None]
  - CONDITION AGGRAVATED [None]
  - CORONARY ARTERY DISEASE [None]
